FAERS Safety Report 18822602 (Version 2)
Quarter: 2021Q1

REPORT INFORMATION
  Report Type: Spontaneous
  Country: US (occurrence: US)
  Receive Date: 20210202
  Receipt Date: 20210225
  Transmission Date: 20210419
  Serious: No
  Sender: FDA-Public Use
  Company Number: US-ELI_LILLY_AND_COMPANY-US202101003265

PATIENT
  Age: 47 Year
  Sex: Male
  Weight: 145.2 kg

DRUGS (1)
  1. BAMLANIVIMAB 700MG [Suspect]
     Active Substance: BAMLANIVIMAB
     Indication: COVID-19
     Dosage: 700 MG, SINGLE
     Route: 041
     Dates: start: 20201227, end: 20201227

REACTIONS (5)
  - Infusion site swelling [Recovered/Resolved]
  - Infusion site dryness [Unknown]
  - Infusion site extravasation [Unknown]
  - Infusion site warmth [Unknown]
  - Infusion site erythema [Unknown]

NARRATIVE: CASE EVENT DATE: 20201227
